FAERS Safety Report 5123077-7 (Version None)
Quarter: 2006Q4

REPORT INFORMATION
  Report Type: 
  Country: None (occurrence: None)
  Receive Date: 20061004
  Receipt Date: 20061004
  Transmission Date: 20070319
  Serious: No
  Sender: FDA-Public Use
  Company Number: None

PATIENT
  Sex: Female
  Weight: 81.1939 kg

DRUGS (1)
  1. SYNTHROID [Suspect]
     Indication: HYPOTHYROIDISM
     Dosage: 0.1MG 1 QD PO
     Route: 048

REACTIONS (3)
  - FATIGUE [None]
  - ONYCHOCLASIS [None]
  - WEIGHT INCREASED [None]
